FAERS Safety Report 4755476-7 (Version None)
Quarter: 2005Q3

REPORT INFORMATION
  Report Type: 
  Country: None (occurrence: None)
  Receive Date: 20050830
  Receipt Date: 20050823
  Transmission Date: 20060218
  Serious: Yes (Hospitalization)
  Sender: FDA-Public Use
  Company Number: AU-BOEHRINGER INGELHEIM PHARMACEUTICALS, INC.-2005-BP-14778AU

PATIENT
  Sex: Male

DRUGS (6)
  1. VIRAMUNE [Suspect]
     Indication: HIV INFECTION
     Dates: start: 20050121, end: 20050131
  2. 3TC [Suspect]
     Indication: HIV INFECTION
     Dates: start: 20050121, end: 20050202
  3. ABACAVIR [Suspect]
     Indication: HIV INFECTION
     Dates: start: 20050121, end: 20050131
  4. BACTRIM DS [Suspect]
     Indication: ADVERSE EVENT
     Dates: start: 20040115
  5. SERETIDE (SALMETEROL/FLUTICASONE) [Concomitant]
     Indication: ASTHMA
     Dosage: 1000/100 MCG/MCG
     Route: 055
  6. VENTOLIN [Concomitant]
     Indication: ASTHMA
     Route: 055

REACTIONS (8)
  - CHILLS [None]
  - DIARRHOEA [None]
  - DYSPNOEA [None]
  - NAUSEA [None]
  - PYREXIA [None]
  - VOMITING [None]
  - WHEEZING [None]
  - WHITE BLOOD CELL COUNT INCREASED [None]
